FAERS Safety Report 7722555-1 (Version None)
Quarter: 2011Q3

REPORT INFORMATION
  Report Type: 
  Country: None (occurrence: None)
  Receive Date: 20110831
  Receipt Date: 20110824
  Transmission Date: 20111222
  Serious: Yes (Hospitalization)
  Sender: FDA-Public Use
  Company Number: JP-ABBOTT-11P-087-0844668-00

PATIENT
  Sex: Male
  Weight: 76.9 kg

DRUGS (6)
  1. HUMIRA [Suspect]
     Indication: PSORIATIC ARTHROPATHY
     Route: 058
     Dates: start: 20110608, end: 20110608
  2. HUMIRA [Suspect]
     Dates: start: 20110622
  3. PYRIDOXAL PHOSPHATE HYDRATE [Concomitant]
     Indication: PROPHYLAXIS
     Route: 048
     Dates: start: 20110527
  4. ISONIAZID [Concomitant]
     Indication: ANTIBIOTIC PROPHYLAXIS
     Route: 048
     Dates: start: 20110527
  5. VALSARTAN [Concomitant]
     Indication: HYPERTENSION
     Route: 048
     Dates: start: 20100324
  6. HUMIRA [Suspect]
     Dates: start: 20110803

REACTIONS (2)
  - MYOCARDIAL INFARCTION [None]
  - CORONARY ARTERY OCCLUSION [None]
